FAERS Safety Report 5118720-2 (Version None)
Quarter: 2006Q4

REPORT INFORMATION
  Report Type: 
  Country: None (occurrence: None)
  Receive Date: 20061002
  Receipt Date: 20060920
  Transmission Date: 20070319
  Serious: Yes (Other)
  Sender: FDA-Public Use
  Company Number: PHEH2006US12047

PATIENT
  Age: 77 Year
  Sex: Male

DRUGS (12)
  1. EXJADE [Suspect]
     Dosage: 1250 MG, QD
     Dates: start: 20060713, end: 20060726
  2. EXJADE [Suspect]
     Dosage: 1250 MG, QD
     Route: 048
     Dates: start: 20060822, end: 20060906
  3. LANTUS [Concomitant]
     Indication: DIABETES MELLITUS
  4. HUMALOG [Concomitant]
     Indication: DIABETES MELLITUS
  5. COZAAR [Concomitant]
     Indication: PROPHYLAXIS
  6. FLOMAX [Concomitant]
     Indication: PROPHYLAXIS
  7. COREG [Concomitant]
  8. FOLIC ACID [Concomitant]
  9. MAGNESIUM OXIDE [Concomitant]
  10. MORPHINE SULFATE [Concomitant]
  11. NEUPOGEN [Concomitant]
  12. EPOGEN [Concomitant]

REACTIONS (2)
  - BLOOD BILIRUBIN INCREASED [None]
  - BLOOD PRESSURE INCREASED [None]
